FAERS Safety Report 10133607 (Version 2)
Quarter: 2014Q2

REPORT INFORMATION
  Report Type: Report from Study
  Country: ES (occurrence: ES)
  Receive Date: 20140428
  Receipt Date: 20140505
  Transmission Date: 20141212
  Serious: Yes (Hospitalization)
  Sender: FDA-Public Use
  Company Number: ES-GLAXOSMITHKLINE-B0984455A

PATIENT
  Sex: Female
  Weight: 67 kg

DRUGS (1)
  1. PAZOPANIB [Suspect]
     Indication: LIPOSARCOMA METASTATIC
     Dosage: 800MG PER DAY
     Dates: start: 20140127

REACTIONS (2)
  - Myocardial infarction [Recovering/Resolving]
  - Cardiac disorder [Recovered/Resolved]
